FAERS Safety Report 25370008 (Version 2)
Quarter: 2025Q2

REPORT INFORMATION
  Report Type: Spontaneous
  Country: PR (occurrence: PR)
  Receive Date: 20250528
  Receipt Date: 20250627
  Transmission Date: 20250717
  Serious: No
  Sender: PFIZER
  Company Number: PR-PFIZER INC-202500109721

PATIENT
  Age: 64 Year
  Sex: Female

DRUGS (1)
  1. ELREXFIO [Suspect]
     Active Substance: ELRANATAMAB-BCMM
     Indication: Plasma cell myeloma refractory
     Dosage: 76MG SC WEEKLY
     Route: 058
     Dates: start: 20250220, end: 20250411

REACTIONS (2)
  - Skin exfoliation [Recovering/Resolving]
  - Pustule [Recovering/Resolving]
